FAERS Safety Report 4951199-X (Version None)
Quarter: 2006Q1

REPORT INFORMATION
  Report Type: 
  Country: None (occurrence: None)
  Receive Date: 20060315
  Receipt Date: 20060302
  Transmission Date: 20060701
  Serious: Yes (Death, Other)
  Sender: FDA-Public Use
  Company Number: 2006JP000547

PATIENT
  Age: 64 Month
  Sex: Male

DRUGS (2)
  1. PROGRAF [Suspect]
     Indication: BONE MARROW TRANSPLANT
  2. METHOTREXATE [Concomitant]

REACTIONS (7)
  - CHROMOSOME ABNORMALITY [None]
  - COMPLICATIONS OF TRANSPLANT SURGERY [None]
  - EVAN'S SYNDROME [None]
  - GRAFT VERSUS HOST DISEASE [None]
  - HISTIOCYTOSIS HAEMATOPHAGIC [None]
  - INTERSTITIAL LUNG DISEASE [None]
  - RESPIRATORY SYNCYTIAL VIRUS INFECTION [None]
